FAERS Safety Report 21239674 (Version 1)
Quarter: 2022Q3

REPORT INFORMATION
  Report Type: Spontaneous
  Country: CH (occurrence: CH)
  Receive Date: 20220822
  Receipt Date: 20220822
  Transmission Date: 20221026
  Serious: Yes (Other)
  Sender: FDA-Public Use
  Company Number: None

PATIENT
  Age: 53 Year
  Sex: Male

DRUGS (18)
  1. HYDROXYUREA [Suspect]
     Active Substance: HYDROXYUREA
     Indication: Essential thrombocythaemia
     Dosage: LITALIR  (HYDROXYCARBAMID) 500 MG ORALE EINNAHME VON 04/2006 BIS 09/2012 SOWIE AB 26.06.2013 BIS ...
     Route: 048
     Dates: start: 200604, end: 201209
  2. HYDROXYUREA [Suspect]
     Active Substance: HYDROXYUREA
     Dosage: LITALIR  (HYDROXYCARBAMID) 500 MG ORALE EINNAHME VON 04/2006 BIS 09/2012 SOWIE AB 26.06.2013 BIS ...
     Route: 048
     Dates: start: 20130626
  3. HYDROCHLOROTHIAZIDE [Suspect]
     Active Substance: HYDROCHLOROTHIAZIDE
     Indication: Hypertension
     Dosage: COMILORID  (AMILORID/HYDROCHLOROTHIAZID) 5/50MG ORALE EINNAHME UNBEKANNTE EINNAHMEDAUER ZWISCHEN ...
     Route: 048
     Dates: start: 2012, end: 2020
  4. XARELTO [Concomitant]
     Active Substance: RIVAROXABAN
     Indication: Product used for unknown indication
     Dosage: XARELTO  TBL. 2.5 MG (RIVAROXABAN)		1-0-1
     Route: 048
  5. ASPIRIN [Concomitant]
     Active Substance: ASPIRIN
     Indication: Product used for unknown indication
     Dosage: ASPIRIN CARDIO  100 MG (ACETYLSALICYLSAURE)	1-0-0
     Route: 048
  6. METOPROLOL [Concomitant]
     Active Substance: METOPROLOL
     Indication: Product used for unknown indication
     Dosage: METOPROLOL  TBL. 50 MG (METOPROLOL)		1-0-1
     Route: 048
  7. CANDESARTAN [Concomitant]
     Active Substance: CANDESARTAN
     Indication: Product used for unknown indication
     Dosage: CANDESARTAN  TBL.16 MG (CANDESARTAN)	1-0-0
     Route: 048
  8. TORSEMIDE [Concomitant]
     Active Substance: TORSEMIDE
     Indication: Product used for unknown indication
     Dosage: TORASEMID  TBL. 5 MG (TORASEMID)		1-0-0
     Route: 048
  9. EZETIMIBE [Concomitant]
     Active Substance: EZETIMIBE
     Indication: Product used for unknown indication
     Dosage: EZETIMIB  TBL. 10 MG (EZETIMIB)		1-0-0
     Route: 048
  10. ATORVASTATIN [Concomitant]
     Active Substance: ATORVASTATIN
     Indication: Product used for unknown indication
     Dosage: ATORVASTATIN  TBL. 40 MG (ATORVASTATIN)		1-0-0
     Route: 048
  11. PRASUGREL HYDROCHLORIDE [Concomitant]
     Active Substance: PRASUGREL HYDROCHLORIDE
     Indication: Product used for unknown indication
     Dosage: EFIENT  TBL. (PRASUGREL) 10 MG
     Route: 048
  12. AMLODIPINE BESYLATE [Concomitant]
     Active Substance: AMLODIPINE BESYLATE
     Indication: Product used for unknown indication
     Dosage: AMLODIPIN  TBL. (AMLODIPIN)
     Route: 048
  13. IMETELSTAT [Concomitant]
     Active Substance: IMETELSTAT
     Indication: Product used for unknown indication
     Dosage: IMETELSTAT (TELOMERASE-INHIBITOR) 10/2012 BIS 06/2013
     Route: 065
     Dates: start: 201210, end: 201306
  14. MOTILIUM [Concomitant]
     Active Substance: DOMPERIDONE
     Indication: Product used for unknown indication
     Route: 065
  15. CLEMASTINE FUMARATE [Concomitant]
     Active Substance: CLEMASTINE FUMARATE
     Indication: Product used for unknown indication
     Route: 065
  16. DEXAMETHASONE [Concomitant]
     Active Substance: DEXAMETHASONE
     Indication: Product used for unknown indication
     Route: 065
  17. ANAGRELIDE HYDROCHLORIDE [Concomitant]
     Active Substance: ANAGRELIDE HYDROCHLORIDE
     Indication: Product used for unknown indication
     Route: 048
  18. INTERFERON THERAPY [Concomitant]
     Indication: Product used for unknown indication
     Route: 065
     Dates: end: 2012

REACTIONS (1)
  - Actinic keratosis [Unknown]

NARRATIVE: CASE EVENT DATE: 20180201
